FAERS Safety Report 9493238 (Version 1)
Quarter: 2013Q3

REPORT INFORMATION
  Report Type: Spontaneous
  Country: US (occurrence: US)
  Receive Date: 20130902
  Receipt Date: 20130902
  Transmission Date: 20140515
  Serious: Yes (Other)
  Sender: FDA-Public Use
  Company Number: PHHY2013US094028

PATIENT
  Age: 76 Year
  Sex: Female

DRUGS (2)
  1. PAMIDRONATE [Suspect]
     Indication: PLASMA CELL MYELOMA
     Dosage: 90 MG (4 DOSES)
  2. ZOLEDRONIC ACID [Suspect]
     Indication: PLASMA CELL MYELOMA
     Dosage: 4 MG /5 ML (27 DOSES)

REACTIONS (4)
  - Osteonecrosis of jaw [Unknown]
  - Exposed bone in jaw [Unknown]
  - Purulent discharge [Unknown]
  - Fistula [Unknown]
